FAERS Safety Report 20930771 (Version 1)
Quarter: 2022Q2

REPORT INFORMATION
  Report Type: Spontaneous
  Country: KZ (occurrence: KZ)
  Receive Date: 20220608
  Receipt Date: 20220608
  Transmission Date: 20220721
  Serious: Yes (Other)
  Sender: FDA-Public Use
  Company Number: KZ-NOVARTISPH-NVSC2022KZ128611

PATIENT
  Sex: Female

DRUGS (1)
  1. BROLUCIZUMAB [Suspect]
     Active Substance: BROLUCIZUMAB
     Indication: Age-related macular degeneration
     Dosage: UNK (SECOND LOADING DOSE)
     Route: 065

REACTIONS (3)
  - Retinal oedema [Unknown]
  - Visual impairment [Unknown]
  - Drug ineffective [Unknown]
